FAERS Safety Report 6852756-6 (Version None)
Quarter: 2010Q3

REPORT INFORMATION
  Report Type: 
  Country: None (occurrence: None)
  Receive Date: 20100717
  Receipt Date: 20071220
  Transmission Date: 20110219
  Serious: No
  Sender: FDA-Public Use
  Company Number: US-PFIZER INC-2007097733

PATIENT
  Sex: Female
  Weight: 79.545 kg

DRUGS (5)
  1. CHANTIX [Suspect]
     Indication: SMOKING CESSATION THERAPY
     Dates: start: 20071118
  2. MELATONIN [Concomitant]
     Indication: SLEEP DISORDER
  3. MELATONIN [Concomitant]
     Indication: AGITATION
  4. FISH OIL [Concomitant]
  5. VITAMINS [Concomitant]

REACTIONS (4)
  - BALANCE DISORDER [None]
  - DIZZINESS [None]
  - FEELING DRUNK [None]
  - INAPPROPRIATE AFFECT [None]
